FAERS Safety Report 4677829-8 (Version None)
Quarter: 2005Q2

REPORT INFORMATION
  Report Type: 
  Country: None (occurrence: None)
  Receive Date: 20050531
  Receipt Date: 20040115
  Transmission Date: 20051028
  Serious: Yes (Hospitalization, Other)
  Sender: FDA-Public Use
  Company Number: US-BRISTOL-MYERS SQUIBB COMPANY-12479416

PATIENT
  Age: 50 Year
  Sex: Female

DRUGS (2)
  1. SERZONE [Suspect]
     Indication: DEPRESSION
     Route: 048
     Dates: start: 19970101, end: 20010225
  2. SERZONE [Suspect]
     Indication: PANIC DISORDER
     Route: 048
     Dates: start: 19970101, end: 20010225

REACTIONS (3)
  - HEPATITIS C [None]
  - HYPERSENSITIVITY [None]
  - LIVER DISORDER [None]
